FAERS Safety Report 5161920-6 (Version None)
Quarter: 2006Q4

REPORT INFORMATION
  Report Type: 
  Country: None (occurrence: None)
  Receive Date: 20061130
  Receipt Date: 20061024
  Transmission Date: 20070319
  Serious: No
  Sender: FDA-Public Use
  Company Number: US-GLAXOSMITHKLINE-A0624774A

PATIENT
  Age: 44 Year
  Sex: Female

DRUGS (3)
  1. WELLBUTRIN XL [Suspect]
     Dosage: 300MG PER DAY
     Route: 048
     Dates: start: 20060819, end: 20060927
  2. PERIOSTAT [Concomitant]
  3. DICLOFENAC SODIUM [Concomitant]

REACTIONS (3)
  - ABASIA [None]
  - JOINT SWELLING [None]
  - PAIN [None]
